FAERS Safety Report 5005827-3 (Version None)
Quarter: 2006Q2

REPORT INFORMATION
  Report Type: 
  Country: None (occurrence: None)
  Receive Date: 20060517
  Receipt Date: 20060517
  Transmission Date: 20061013
  Serious: Yes (Hospitalization)
  Sender: FDA-Public Use
  Company Number: None

PATIENT
  Age: 76 Year
  Sex: Male

DRUGS (7)
  1. INSULIN INSULATARD NPH NORDISK [Suspect]
     Indication: DIABETES MELLITUS INSULIN-DEPENDENT
     Dosage: 30 UNITS Q AM / 5 UNITS Q PM
     Dates: start: 19950501
  2. GABAPENTIN [Concomitant]
  3. MS CONTIN [Concomitant]
  4. NIFEDIPINE [Concomitant]
  5. NITROGLYCERIN [Concomitant]
  6. PROCHLORPERAZINE [Concomitant]
  7. DSS [Concomitant]

REACTIONS (3)
  - ASTHENIA [None]
  - DYSARTHRIA [None]
  - HYPOGLYCAEMIA [None]
